FAERS Safety Report 9697302 (Version 1)
Quarter: 2013Q4

REPORT INFORMATION
  Report Type: Report from Study
  Country: GB (occurrence: GB)
  Receive Date: 20131120
  Receipt Date: 20131120
  Transmission Date: 20140711
  Serious: Yes (Hospitalization)
  Sender: FDA-Public Use
  Company Number: GB-ACCORD-020296

PATIENT
  Age: 54 Year
  Sex: Female

DRUGS (3)
  1. DOCETAXEL [Suspect]
     Indication: PRODUCT USED FOR UNKNOWN INDICATION
     Route: 065
  2. HERCEPTIN [Suspect]
     Indication: HER-2 POSITIVE BREAST CANCER
     Dosage: LOADING DOSE OF 8 MG/KG FOLLOWED BY MAINTANANCE DOSE OF 6 MG/KG
     Route: 042
     Dates: start: 20120920, end: 20121130
  3. PERTUZUMAB [Suspect]
     Indication: HER-2 POSITIVE BREAST CANCER
     Dosage: BLINDED, PLACEBO
     Dates: start: 20120920, end: 20121130

REACTIONS (1)
  - Pneumonitis [Recovered/Resolved]
